FAERS Safety Report 4437275-9 (Version None)
Quarter: 2004Q3

REPORT INFORMATION
  Report Type: 
  Country: None (occurrence: None)
  Receive Date: 20040827
  Receipt Date: 20040825
  Transmission Date: 20050211
  Serious: Yes (Other)
  Sender: FDA-Public Use
  Company Number: 200410975BCC

PATIENT
  Age: 47 Year
  Sex: Male
  Weight: 86.1834 kg

DRUGS (4)
  1. ASPIRIN [Suspect]
     Indication: MYOCARDIAL INFARCTION
     Dosage: 325 MG, QD, ORAL
     Route: 048
  2. ASPIRIN [Suspect]
     Indication: PROPHYLAXIS
     Dosage: 325 MG, QD, ORAL
     Route: 048
  3. AFRICAN HERBAL [Concomitant]
  4. ANUSOL PLUS SUPPOSITORY [Concomitant]

REACTIONS (3)
  - HAEMOPTYSIS [None]
  - HAEMORRHOIDS [None]
  - HERNIA [None]
